FAERS Safety Report 8182800-8 (Version None)
Quarter: 2012Q1

REPORT INFORMATION
  Report Type: 
  Country: None (occurrence: None)
  Receive Date: 20120305
  Receipt Date: 20120224
  Transmission Date: 20120608
  Serious: Yes (Hospitalization)
  Sender: FDA-Public Use
  Company Number: US-BAYER-2011-085334

PATIENT
  Sex: Female

DRUGS (2)
  1. YAZ [Suspect]
     Dosage: UNK
     Dates: start: 20030301, end: 20070401
  2. YASMIN [Suspect]
     Dosage: UNK
     Dates: start: 20030301, end: 20070401

REACTIONS (2)
  - PAIN [None]
  - DEEP VEIN THROMBOSIS [None]
